FAERS Safety Report 18558841 (Version 1)
Quarter: 2020Q4

REPORT INFORMATION
  Report Type: Spontaneous
  Country: US (occurrence: US)
  Receive Date: 20201125
  Receipt Date: 20201125
  Transmission Date: 20210114
  Serious: Yes (Death)
  Sender: FDA-Public Use
  Company Number: None

PATIENT
  Age: 69 Year
  Sex: Female

DRUGS (17)
  1. HYDROMORPHON [Concomitant]
     Active Substance: HYDROMORPHONE
  2. PREDNISONE. [Concomitant]
     Active Substance: PREDNISONE
  3. ESCITALOPRAM [Concomitant]
     Active Substance: ESCITALOPRAM OXALATE
  4. ALPRAZOLAM. [Concomitant]
     Active Substance: ALPRAZOLAM
  5. MUPIROCIN. [Concomitant]
     Active Substance: MUPIROCIN
  6. TRIAMCINOLON [Concomitant]
  7. REPATHA [Suspect]
     Active Substance: EVOLOCUMAB
     Indication: TYPE V HYPERLIPIDAEMIA
     Dosage: ?          OTHER FREQUENCY:EVERY 2 WEEKS;?
     Route: 058
     Dates: start: 20190510, end: 20201104
  8. FENTANYL. [Concomitant]
     Active Substance: FENTANYL
  9. MONTELUKAST [Concomitant]
     Active Substance: MONTELUKAST SODIUM
  10. ELIQUIS [Concomitant]
     Active Substance: APIXABAN
  11. ZOLPIDEM [Concomitant]
     Active Substance: ZOLPIDEM TARTRATE
  12. CYANOCOBALAM [Concomitant]
     Active Substance: CYANOCOBALAMIN
  13. ESOMEPRA MAG [Concomitant]
  14. CIPRO [Concomitant]
     Active Substance: CIPROFLOXACIN HYDROCHLORIDE
  15. GABAPENTIN. [Concomitant]
     Active Substance: GABAPENTIN
  16. PIOGLITAZONE. [Concomitant]
     Active Substance: PIOGLITAZONE
  17. VIT. B12 [Concomitant]

REACTIONS (1)
  - Death [None]

NARRATIVE: CASE EVENT DATE: 20201104
